FAERS Safety Report 5890805-2 (Version None)
Quarter: 2008Q3

REPORT INFORMATION
  Report Type: 
  Country: None (occurrence: None)
  Receive Date: 20080922
  Receipt Date: 20080909
  Transmission Date: 20090109
  Serious: Yes (Other)
  Sender: FDA-Public Use
  Company Number: US-AMGEN-US308580

PATIENT
  Age: 78 Year
  Sex: Female
  Weight: 62.65 kg

DRUGS (9)
  1. ENBREL [Suspect]
     Indication: RHEUMATOID ARTHRITIS
     Dosage: 25 MG TWICE WEEKLY
     Route: 058
     Dates: start: 19981130, end: 19981216
  2. PRILOSEC [Concomitant]
     Dosage: 20 MG DAILY
     Route: 048
  3. HYDROCHLOROTHIAZIDE [Concomitant]
     Route: 065
  4. CALCIUM GLUCONATE [Concomitant]
     Route: 065
  5. VITAMIN E [Concomitant]
     Route: 065
  6. METHOTREXATE [Concomitant]
     Route: 065
     Dates: start: 19980810
  7. CONJUGATED ESTROGENS [Concomitant]
     Route: 065
  8. LEVOTHYROXINE SODIUM [Concomitant]
     Route: 065
  9. ETODOLAC [Concomitant]
     Route: 065

REACTIONS (2)
  - CUTANEOUS LUPUS ERYTHEMATOSUS [None]
  - INJECTION SITE ERYTHEMA [None]
